FAERS Safety Report 6530767-8 (Version None)
Quarter: 2010Q1

REPORT INFORMATION
  Report Type: 
  Country: None (occurrence: None)
  Receive Date: 20100108
  Receipt Date: 20090130
  Transmission Date: 20100710
  Serious: No
  Sender: FDA-Public Use
  Company Number: A0766117A

PATIENT
  Age: 73 Year
  Sex: Female

DRUGS (6)
  1. LOVAZA [Suspect]
     Dosage: 1CAP TWICE PER DAY
     Route: 048
     Dates: start: 20070101
  2. COUMADIN [Concomitant]
  3. LANOXIN [Concomitant]
  4. METOPROLOL TARTRATE [Concomitant]
  5. SYNTHROID [Concomitant]
  6. FUROSEMIDE [Concomitant]

REACTIONS (1)
  - DRUG INEFFECTIVE [None]
